FAERS Safety Report 5424804-1 (Version None)
Quarter: 2007Q3

REPORT INFORMATION
  Report Type: 
  Country: None (occurrence: None)
  Receive Date: 20070822
  Receipt Date: 20070815
  Transmission Date: 20080115
  Serious: Yes (Hospitalization, Other)
  Sender: FDA-Public Use
  Company Number: 2007SP015779

PATIENT
  Age: 59 Year
  Sex: Female
  Weight: 85.3 kg

DRUGS (2)
  1. TEMODAR [Suspect]
     Indication: GLIOBLASTOMA MULTIFORME
     Dosage: 200 MG; QD; PO, 200 MG; QD;
     Dates: start: 20070501
  2. TEMODAR [Suspect]
     Indication: GLIOBLASTOMA MULTIFORME
     Dosage: 200 MG; QD; PO, 200 MG; QD;
     Dates: start: 20070725

REACTIONS (5)
  - ACUTE SINUSITIS [None]
  - NEUTROPHIL COUNT DECREASED [None]
  - PNEUMONIA [None]
  - STAPHYLOCOCCAL INFECTION [None]
  - WHITE BLOOD CELL COUNT DECREASED [None]
